FAERS Safety Report 5719751-1 (Version None)
Quarter: 2008Q2

REPORT INFORMATION
  Report Type: 
  Country: None (occurrence: None)
  Receive Date: 20080428
  Receipt Date: 20080423
  Transmission Date: 20081010
  Serious: Yes (Life-Threatening, Hospitalization, Other)
  Sender: FDA-Public Use
  Company Number: PHRM2007FR02459

PATIENT
  Age: 70 Year
  Sex: Male

DRUGS (9)
  1. ZOLEDRONIC ACID [Suspect]
     Indication: OSTEITIS DEFORMANS
     Dosage: 5 MG, ONCE/SINGLE
     Route: 042
     Dates: start: 20070925, end: 20070925
  2. CACIT D3 [Concomitant]
  3. CARVEDILOL [Concomitant]
     Dosage: 6.25 MG, BID
     Route: 048
  4. COZAAR [Concomitant]
     Dosage: 25 MG, BID
     Route: 048
  5. FUROSEMIDE [Concomitant]
     Dosage: 20 MG, QD
     Route: 048
  6. SPIRONOLACTONE [Concomitant]
     Dosage: 50 MG, QD
     Route: 048
  7. LEVOTHYROXINE SODIUM [Concomitant]
     Indication: HYPOTHYROIDISM
     Dosage: 100 UG, QD
     Route: 048
  8. DEDROGYL [Concomitant]
     Dosage: 20 DROPS PER DAY
     Route: 048
     Dates: end: 20071201
  9. STEROGYL [Concomitant]
     Dosage: 2 AMPOULES
     Dates: start: 20070910, end: 20070910

REACTIONS (9)
  - BLOOD ALKALINE PHOSPHATASE INCREASED [None]
  - BLOOD CALCIUM DECREASED [None]
  - BLOOD PARATHYROID HORMONE INCREASED [None]
  - BLOOD PHOSPHORUS DECREASED [None]
  - FATIGUE [None]
  - HYPERPARATHYROIDISM SECONDARY [None]
  - OSTEOMALACIA [None]
  - URINE CALCIUM DECREASED [None]
  - URINE PHOSPHATE DECREASED [None]
